FAERS Safety Report 9095567 (Version 2)
Quarter: 2013Q1

REPORT INFORMATION
  Report Type: Spontaneous
  Country: JP (occurrence: None)
  Receive Date: 20130124
  Receipt Date: 20130131
  Transmission Date: 20140127
  Serious: Yes (Death, Other)
  Sender: FDA-Public Use
  Company Number: JP-CLINIGEN HEALTHCARE LIMITED-003023

PATIENT
  Age: 69 Year
  Sex: Female

DRUGS (3)
  1. FOSCAVIR(FOSCAVIR) [Suspect]
     Route: 042
  2. VALACICLOVIR [Concomitant]
  3. ACYCLOVIR [Concomitant]

REACTIONS (5)
  - Mucosal ulceration [None]
  - Pharyngeal ulceration [None]
  - Respiratory failure [None]
  - Septic shock [None]
  - Varicella virus test positive [None]
